FAERS Safety Report 5935740-6 (Version None)
Quarter: 2008Q4

REPORT INFORMATION
  Report Type: 
  Country: None (occurrence: None)
  Receive Date: 20081030
  Receipt Date: 20081009
  Transmission Date: 20090506
  Serious: Yes (Hospitalization, Other)
  Sender: FDA-Public Use
  Company Number: IT-ELI_LILLY_AND_COMPANY-IT200810004820

PATIENT
  Age: 41 Year
  Sex: Female

DRUGS (3)
  1. CYMBALTA [Suspect]
     Indication: DYSTHYMIC DISORDER
     Dosage: 60 MG, DAILY (1/D)
     Route: 048
     Dates: start: 20071011
  2. PAROXETINE HCL [Concomitant]
     Indication: DYSTHYMIC DISORDER
     Dosage: 10 MG, (HALF 20 MG TABLET) DAILY (1/D)
     Dates: start: 20071011
  3. LEXOTAN [Concomitant]
     Dosage: UNK, UNKNOWN

REACTIONS (3)
  - DRUG EXPOSURE DURING PREGNANCY [None]
  - PRE-ECLAMPSIA [None]
  - STILLBIRTH [None]
